FAERS Safety Report 6248028-3 (Version None)
Quarter: 2009Q2

REPORT INFORMATION
  Report Type: 
  Country: None (occurrence: None)
  Receive Date: 20090626
  Receipt Date: 20090616
  Transmission Date: 20091009
  Serious: Yes (Other)
  Sender: FDA-Public Use
  Company Number: US-GENENTECH-285195

PATIENT
  Sex: Male
  Weight: 47.9 kg

DRUGS (2)
  1. SOMATROPIN [Suspect]
     Indication: GROWTH RETARDATION
     Dosage: 2.3 MG, 7/WEEK
     Route: 058
     Dates: start: 20070620
  2. ADDERALL 10 [Concomitant]
     Indication: DRUG USE FOR UNKNOWN INDICATION

REACTIONS (2)
  - FRACTURE [None]
  - OSTEOCHONDROMA [None]
